FAERS Safety Report 26055166 (Version 1)
Quarter: 2025Q4

REPORT INFORMATION
  Report Type: Spontaneous
  Country: US (occurrence: None)
  Receive Date: 20251117
  Receipt Date: 20251117
  Transmission Date: 20260118
  Serious: No
  Sender: INCYTE
  Company Number: US-EVENT-004766

PATIENT
  Age: 49 Year

DRUGS (1)
  1. OPZELURA [Suspect]
     Active Substance: RUXOLITINIB PHOSPHATE
     Indication: Product used for unknown indication
     Dosage: 1.5 PERCENT, APPLY A THIN LAYER TO AFFECTED AREAS TO LIGHT SPOTS TWICE DAILY
     Route: 065

REACTIONS (1)
  - Product dose omission issue [Unknown]
